FAERS Safety Report 16975643 (Version 1)
Quarter: 2019Q4

REPORT INFORMATION
  Report Type: Spontaneous
  Country: US (occurrence: US)
  Receive Date: 20191030
  Receipt Date: 20191030
  Transmission Date: 20200122
  Serious: No
  Sender: FDA-Public Use
  Company Number: US-COVIS PHARMA B.V.-2019COV00153

PATIENT
  Age: 96 Year
  Sex: Male

DRUGS (1)
  1. ALVESCO [Suspect]
     Active Substance: CICLESONIDE
     Indication: COUGH
     Dosage: 1 PUFF, ONCE IN THE MORNING AND ONCE IN THE EVENING
     Dates: end: 20190630

REACTIONS (7)
  - Unevaluable event [Not Recovered/Not Resolved]
  - Fatigue [Not Recovered/Not Resolved]
  - Accidental exposure to product [Recovering/Resolving]
  - Vision blurred [Not Recovered/Not Resolved]
  - Somnolence [Not Recovered/Not Resolved]
  - Product use complaint [Unknown]
  - Product administration interrupted [Unknown]

NARRATIVE: CASE EVENT DATE: 201906
